FAERS Safety Report 7806299-3 (Version None)
Quarter: 2011Q4

REPORT INFORMATION
  Report Type: 
  Country: None (occurrence: None)
  Receive Date: 20111007
  Receipt Date: 20111007
  Transmission Date: 20120403
  Serious: No
  Sender: FDA-Public Use
  Company Number: None

PATIENT
  Age: 70 Year
  Sex: Female

DRUGS (2)
  1. CLONAZEPAM [Suspect]
     Indication: POST-TRAUMATIC STRESS DISORDER
     Dosage: CLONAZEPAM 0.5 MG BID PO
     Route: 048
     Dates: start: 20110930
  2. CLONAZEPAM [Suspect]
     Indication: POST-TRAUMATIC STRESS DISORDER
     Dosage: CLONAZEPAM 0.5 MG BID PO
     Route: 048
     Dates: start: 20110818

REACTIONS (2)
  - ANXIETY [None]
  - PRODUCT SUBSTITUTION ISSUE [None]
